FAERS Safety Report 7048037-0 (Version None)
Quarter: 2010Q4

REPORT INFORMATION
  Report Type: 
  Country: None (occurrence: None)
  Receive Date: 20101015
  Receipt Date: 20101008
  Transmission Date: 20110411
  Serious: Yes (Hospitalization)
  Sender: FDA-Public Use
  Company Number: A0886818A

PATIENT
  Sex: Female

DRUGS (1)
  1. AVANDIA [Suspect]
     Route: 048
     Dates: start: 20071101, end: 20090201

REACTIONS (4)
  - CARDIAC DISORDER [None]
  - NERVOUSNESS [None]
  - PERFORMANCE STATUS DECREASED [None]
  - VISION BLURRED [None]
